FAERS Safety Report 12617924 (Version 1)
Quarter: 2016Q3

REPORT INFORMATION
  Report Type: Spontaneous
  Country: CN (occurrence: CN)
  Receive Date: 20160803
  Receipt Date: 20160803
  Transmission Date: 20161109
  Serious: Yes (Hospitalization)
  Sender: FDA-Public Use
  Company Number: CN-ROCHE-1804167

PATIENT
  Age: 8 Year
  Sex: Female
  Weight: 25 kg

DRUGS (9)
  1. VITAMIN C [Concomitant]
     Active Substance: ASCORBIC ACID
     Route: 041
     Dates: start: 20160122
  2. GLUCOSE/SODIUM CHLORIDE [Concomitant]
     Active Substance: DEXTROSE\SODIUM CHLORIDE
     Dosage: WITH BUDESONIDE SUSPENSION FOR INHALATION
     Route: 065
     Dates: start: 20160122
  3. GLUCOSE/SODIUM CHLORIDE [Concomitant]
     Active Substance: DEXTROSE\SODIUM CHLORIDE
     Indication: PNEUMONIA
     Dosage: WITH CEFTRIAXONE SODIUM
     Route: 041
     Dates: start: 20160122, end: 20160201
  4. ERYTHROMYCIN LACTOBIONATE [Suspect]
     Active Substance: ERYTHROMYCIN LACTOBIONATE
     Indication: PNEUMONIA
     Route: 041
     Dates: start: 20160122, end: 20160129
  5. GLUCOSE/SODIUM CHLORIDE [Concomitant]
     Active Substance: DEXTROSE\SODIUM CHLORIDE
     Dosage: WITH COMPOUND GLYCYRRHIZIN INJECTION
     Route: 041
     Dates: start: 20160122, end: 20160201
  6. GLYCYRRHIZIN [Concomitant]
     Active Substance: GLYCYRRHIZIN
     Indication: TRANSAMINASES INCREASED
     Route: 041
     Dates: start: 20160122, end: 20160201
  7. BUDESONIDE. [Concomitant]
     Active Substance: BUDESONIDE
     Dosage: SUSPENSION FOR INHALATION
     Route: 065
     Dates: start: 20160122
  8. ROCEPHIN [Suspect]
     Active Substance: CEFTRIAXONE SODIUM
     Indication: PNEUMONIA
     Route: 041
     Dates: start: 20160122, end: 20160201
  9. GLUCOSE [Concomitant]
     Active Substance: DEXTROSE
     Indication: PNEUMONIA
     Dosage: WITH ERYTHROMYCIN LACTOBIONATE
     Route: 041
     Dates: start: 20160122, end: 20160129

REACTIONS (1)
  - Liver injury [Recovering/Resolving]

NARRATIVE: CASE EVENT DATE: 20160129
